FAERS Safety Report 12539666 (Version 1)
Quarter: 2016Q3

REPORT INFORMATION
  Report Type: Spontaneous
  Country: US (occurrence: US)
  Receive Date: 20160708
  Receipt Date: 20160708
  Transmission Date: 20161109
  Serious: No
  Sender: FDA-Public Use
  Company Number: US-WATSON-2015-18316

PATIENT
  Sex: Female

DRUGS (1)
  1. DESMOPRESSIN ACETATE (ACTAVIS LABORATORIES FL) [Suspect]
     Active Substance: DESMOPRESSIN ACETATE
     Indication: ENURESIS
     Dosage: 0.5 MG, 2 TABS AT NIGHT
     Route: 065
     Dates: start: 2005

REACTIONS (2)
  - Fatigue [Unknown]
  - Hair growth abnormal [Unknown]
